FAERS Safety Report 23570889 (Version 2)
Quarter: 2024Q2

REPORT INFORMATION
  Report Type: Spontaneous
  Country: US (occurrence: US)
  Receive Date: 20240227
  Receipt Date: 20240411
  Transmission Date: 20240716
  Serious: No
  Sender: FDA-Public Use
  Company Number: US-PFIZER INC-202400049876

PATIENT
  Age: 59 Year
  Sex: Male

DRUGS (1)
  1. TESTOSTERONE CYPIONATE [Suspect]
     Active Substance: TESTOSTERONE CYPIONATE
     Dosage: INJECT 1 ML EVERY 2 WEEKS
     Route: 030
     Dates: start: 202402

REACTIONS (2)
  - Poor quality product administered [Unknown]
  - Product deposit [Unknown]

NARRATIVE: CASE EVENT DATE: 20240201
